FAERS Safety Report 9785631 (Version 2)
Quarter: 2013Q4

REPORT INFORMATION
  Report Type: Spontaneous
  Country: US (occurrence: US)
  Receive Date: 20131227
  Receipt Date: 20131227
  Transmission Date: 20140711
  Serious: Yes (Hospitalization, Other)
  Sender: FDA-Public Use
  Company Number: US-ELI_LILLY_AND_COMPANY-US_991029297

PATIENT
  Age: 83 Year
  Sex: Female

DRUGS (8)
  1. ZYPREXA [Suspect]
     Dosage: 5 MG, DAILY (1/D)
     Route: 048
  2. BACTRIM [Concomitant]
     Dosage: 800 MG, DAILY (1/D)
  3. LITHIUM [Concomitant]
     Dosage: 1200 MG, DAILY (1/D)
  4. TRAZODONE [Concomitant]
     Dosage: 25 MG, 2/D
  5. PIROXICAM [Concomitant]
     Dosage: 20 MG, DAILY (1/D)
  6. CLONAZEPAM [Concomitant]
     Dosage: 1 MG, EACH EVENING
  7. LACTULOSE [Concomitant]
     Dosage: 10 MG, EACH EVENING
  8. TRIMETHOPRIM [Concomitant]
     Dosage: 160 MG, DAILY (1/D)

REACTIONS (13)
  - Hypothermia [Recovered/Resolved]
  - Coma [Recovered/Resolved]
  - Muscle rigidity [Recovered/Resolved]
  - Antidepressant drug level increased [Recovered/Resolved]
  - Depressed level of consciousness [Recovering/Resolving]
  - Decreased activity [Unknown]
  - Social avoidant behaviour [Recovering/Resolving]
  - Speech disorder [Unknown]
  - Eating disorder [Unknown]
  - Constipation [Unknown]
  - Oedema [Unknown]
  - Lethargy [Unknown]
  - Aspartate aminotransferase increased [Unknown]
